FAERS Safety Report 23712415 (Version 1)
Quarter: 2024Q2

REPORT INFORMATION
  Report Type: Report from Study
  Country: CA (occurrence: CA)
  Receive Date: 20240405
  Receipt Date: 20240405
  Transmission Date: 20240716
  Serious: Yes (Death)
  Sender: FDA-Public Use
  Company Number: CA-MYLANLABS-2023M1086118

PATIENT
  Age: 35 Year
  Sex: Female
  Weight: 70 kg

DRUGS (2)
  1. CLOZAPINE [Suspect]
     Active Substance: CLOZAPINE
     Indication: Schizoaffective disorder
     Dosage: UNK
     Route: 065
     Dates: start: 199710
  2. LITHIUM [Concomitant]
     Active Substance: LITHIUM
     Dosage: UNK
     Route: 065

REACTIONS (2)
  - Amyotrophic lateral sclerosis [Fatal]
  - Off label use [Unknown]

NARRATIVE: CASE EVENT DATE: 19971001
